FAERS Safety Report 20089555 (Version 2)
Quarter: 2022Q1

REPORT INFORMATION
  Report Type: Report from Study
  Country: US (occurrence: US)
  Receive Date: 20211119
  Receipt Date: 20220216
  Transmission Date: 20220423
  Serious: No
  Sender: FDA-Public Use
  Company Number: US-BIOVITRUM-2021US10643

PATIENT
  Age: 56 Year
  Sex: Female

DRUGS (2)
  1. KINERET [Suspect]
     Active Substance: ANAKINRA
     Indication: Cold urticaria
     Route: 058
     Dates: start: 20210721
  2. KINERET [Suspect]
     Active Substance: ANAKINRA
     Indication: Urticaria thermal
     Route: 058
     Dates: start: 20200124

REACTIONS (5)
  - Nasopharyngitis [Unknown]
  - COVID-19 [Unknown]
  - Illness [Unknown]
  - Product dose omission issue [Unknown]
  - Off label use [Not Recovered/Not Resolved]

NARRATIVE: CASE EVENT DATE: 20200124
